FAERS Safety Report 10725855 (Version 1)
Quarter: 2015Q1

REPORT INFORMATION
  Report Type: Spontaneous
  Country: FI (occurrence: None)
  Receive Date: 20150116
  Receipt Date: 20150116
  Transmission Date: 20150721
  Serious: Yes (Hospitalization, Other)
  Sender: FDA-Public Use
  Company Number: FI-ZYDUS-006377

PATIENT
  Age: 21 Year
  Sex: Female

DRUGS (1)
  1. SODIUM VALPROATE (SODIUM VALPROATE) [Suspect]
     Active Substance: VALPROATE SODIUM
     Indication: PARTIAL SEIZURES

REACTIONS (7)
  - Coagulation factor deficiency [None]
  - Ascites [None]
  - Transplant rejection [None]
  - Acute hepatic failure [None]
  - Toxicity to various agents [None]
  - Liver transplant [None]
  - Metabolic encephalopathy [None]
